FAERS Safety Report 15468859 (Version 2)
Quarter: 2019Q2

REPORT INFORMATION
  Report Type: Spontaneous
  Country: FR (occurrence: FR)
  Receive Date: 20181005
  Receipt Date: 20190411
  Transmission Date: 20190711
  Serious: Yes (Death, Life-Threatening, Other)
  Sender: FDA-Public Use
  Company Number: FR-GLAXOSMITHKLINE-FR2018179548

PATIENT
  Age: 26 Year
  Sex: Female
  Weight: 97 kg

DRUGS (13)
  1. BUSILVEX [Suspect]
     Active Substance: BUSULFAN
     Indication: STEM CELL TRANSPLANT
     Dosage: 3.2 MG/KG, QD
     Route: 042
     Dates: start: 20180526, end: 20180528
  2. TRIFLUCAN [Suspect]
     Active Substance: FLUCONAZOLE
     Indication: PYREXIA
     Dosage: 200 MG, QD
     Route: 042
     Dates: start: 201806, end: 201806
  3. CELLCEPT [Suspect]
     Active Substance: MYCOPHENOLATE MOFETIL\MYCOPHENOLATE MOFETIL HYDROCHLORIDE
     Indication: PROPHYLAXIS AGAINST TRANSPLANT REJECTION
     Dosage: 45 MG/KG, QD
     Route: 042
     Dates: start: 20180605, end: 201807
  4. VANCOMYCINE [Suspect]
     Active Substance: VANCOMYCIN
     Indication: PYREXIA
     Dosage: 2.5 G, QD
     Route: 042
     Dates: start: 201806, end: 201806
  5. FORTUM [Suspect]
     Active Substance: CEFTAZIDIME
     Indication: PYREXIA
     Dosage: 6 G, QD
     Route: 042
     Dates: start: 201806, end: 201806
  6. ENDOXAN [Suspect]
     Active Substance: CYCLOPHOSPHAMIDE
     Indication: PROPHYLAXIS AGAINST TRANSPLANT REJECTION
     Dosage: 50 MG/KG, QD
     Route: 042
     Dates: start: 20180603, end: 20180604
  7. ROCEPHINE [Suspect]
     Active Substance: CEFTRIAXONE SODIUM
     Indication: PYREXIA
     Dosage: 1 DF, QD
     Route: 042
     Dates: start: 20180601, end: 20180603
  8. AMIKACIN SULFATE. [Suspect]
     Active Substance: AMIKACIN SULFATE
     Indication: PYREXIA
     Dosage: 1.5 G, QD
     Route: 042
     Dates: start: 20180601, end: 20180603
  9. DELURSAN [Suspect]
     Active Substance: URSODIOL
     Indication: DRUG TOXICITY PROPHYLAXIS
     Dosage: 3 DF, QD
     Route: 048
     Dates: start: 201805, end: 201806
  10. ACICLOVIR [Suspect]
     Active Substance: ACYCLOVIR
     Indication: PYREXIA
     Dosage: 750 MG, QD
     Route: 042
     Dates: start: 201806, end: 201806
  11. CICLOSPORIN [Suspect]
     Active Substance: CYCLOSPORINE
     Indication: PROPHYLAXIS AGAINST TRANSPLANT REJECTION
     Dosage: 3 MG/KG, QD
     Route: 042
     Dates: start: 20180605, end: 20180614
  12. THIOTEPA. [Suspect]
     Active Substance: THIOTEPA
     Indication: STEM CELL TRANSPLANT
     Dosage: 5 MG/KG, QD
     Route: 042
     Dates: start: 20180524, end: 20180525
  13. FLUDARABINE PHOSPHATE. [Suspect]
     Active Substance: FLUDARABINE PHOSPHATE
     Indication: STEM CELL TRANSPLANT
     Dosage: 40 MG/M2, QD
     Route: 042
     Dates: start: 20180526, end: 20180529

REACTIONS (3)
  - Cardiac tamponade [Recovered/Resolved]
  - Septic shock [Fatal]
  - Myocarditis [Recovering/Resolving]

NARRATIVE: CASE EVENT DATE: 20180609
